FAERS Safety Report 9310972 (Version 1)
Quarter: 2013Q2

REPORT INFORMATION
  Report Type: Spontaneous
  Country: US (occurrence: None)
  Receive Date: 20130523
  Receipt Date: 20130523
  Transmission Date: 20140414
  Serious: Yes (Other)
  Sender: FDA-Public Use
  Company Number: None

PATIENT
  Age: 55 Year
  Sex: Female
  Weight: 73.03 kg

DRUGS (1)
  1. SEROQUEL [Suspect]

REACTIONS (5)
  - Suicidal ideation [None]
  - Ill-defined disorder [None]
  - Amnesia [None]
  - Depression [None]
  - Feeling abnormal [None]
